FAERS Safety Report 7973899-X (Version None)
Quarter: 2011Q4

REPORT INFORMATION
  Report Type: 
  Country: None (occurrence: None)
  Receive Date: 20111213
  Receipt Date: 20111205
  Transmission Date: 20120403
  Serious: Yes (Death)
  Sender: FDA-Public Use
  Company Number: AT-BRISTOL-MYERS SQUIBB COMPANY-16287211

PATIENT
  Age: 80 Year
  Sex: Female

DRUGS (3)
  1. FUROSEMIDE [Suspect]
  2. DEXIBUPROFEN [Suspect]
  3. METFORMIN HCL [Suspect]

REACTIONS (2)
  - LACTIC ACIDOSIS [None]
  - RENAL FAILURE ACUTE [None]
